FAERS Safety Report 7151870-8 (Version None)
Quarter: 2010Q4

REPORT INFORMATION
  Report Type: 
  Country: None (occurrence: None)
  Receive Date: 20101210
  Receipt Date: 20101203
  Transmission Date: 20110411
  Serious: Yes (Hospitalization, Other)
  Sender: FDA-Public Use
  Company Number: US-AMGEN-USASP2010007423

PATIENT

DRUGS (1)
  1. ENBREL [Suspect]
     Indication: RHEUMATOID ARTHRITIS
     Dosage: 50 MG, QWK
     Dates: start: 20020101

REACTIONS (10)
  - AMNESIA [None]
  - AORTIC VALVE REPAIR [None]
  - EAR INFECTION [None]
  - INFECTION SUSCEPTIBILITY INCREASED [None]
  - KNEE ARTHROPLASTY [None]
  - NEPHROLITHIASIS [None]
  - RHEUMATOID ARTHRITIS [None]
  - SINGLE FUNCTIONAL KIDNEY [None]
  - SINUSITIS [None]
  - UPPER RESPIRATORY TRACT INFECTION [None]
